FAERS Safety Report 22037794 (Version 2)
Quarter: 2024Q2

REPORT INFORMATION
  Report Type: Spontaneous
  Country: US (occurrence: US)
  Receive Date: 20230227
  Receipt Date: 20240517
  Transmission Date: 20240716
  Serious: No
  Sender: FDA-Public Use
  Company Number: US-BIOGEN-2023BI01180357

PATIENT
  Age: 63 Year
  Sex: Female

DRUGS (9)
  1. VUMERITY [Suspect]
     Active Substance: DIROXIMEL FUMARATE
     Indication: Multiple sclerosis
     Dosage: TAKE 2 CAPSULES (462 MG) BY MOUTH TWICE DAILY
     Route: 050
     Dates: start: 20210208
  2. ATORVASTATIN [Concomitant]
     Active Substance: ATORVASTATIN
     Route: 050
  3. IBUPROFEN [Concomitant]
     Active Substance: IBUPROFEN
     Route: 050
  4. IBUPROFEN [Concomitant]
     Active Substance: IBUPROFEN
     Route: 050
  5. LISINOPRIL [Concomitant]
     Active Substance: LISINOPRIL
     Route: 050
  6. LISINOPRIL [Concomitant]
     Active Substance: LISINOPRIL
     Route: 050
  7. SERTRALINE [Concomitant]
     Active Substance: SERTRALINE HYDROCHLORIDE
     Route: 050
  8. SERTRALINE [Concomitant]
     Active Substance: SERTRALINE HYDROCHLORIDE
     Route: 050
  9. KENALOG [Concomitant]
     Active Substance: TRIAMCINOLONE ACETONIDE
     Route: 050

REACTIONS (3)
  - Product dose omission issue [Not Recovered/Not Resolved]
  - Frustration tolerance decreased [Recovered/Resolved]
  - Flushing [Not Recovered/Not Resolved]

NARRATIVE: CASE EVENT DATE: 20230201
